FAERS Safety Report 5837199-6 (Version None)
Quarter: 2008Q3

REPORT INFORMATION
  Report Type: 
  Country: None (occurrence: None)
  Receive Date: 20080807
  Receipt Date: 20080731
  Transmission Date: 20090109
  Serious: Yes (Other)
  Sender: FDA-Public Use
  Company Number: NL-WYE-H04303408

PATIENT
  Age: 77 Year
  Sex: Female

DRUGS (3)
  1. PANTOZOL [Suspect]
     Indication: GASTROOESOPHAGEAL REFLUX DISEASE
     Dosage: UNKNOWN
     Dates: start: 20071001
  2. THYRAX [Concomitant]
     Indication: HYPOTHYROIDISM
     Dosage: UNKNOWN
  3. LOSARTAN POTASSIUM [Concomitant]
     Dosage: 50 MG
     Route: 048

REACTIONS (1)
  - GASTRIC POLYPS [None]
